FAERS Safety Report 15388876 (Version 1)
Quarter: 2018Q3

REPORT INFORMATION
  Report Type: Spontaneous
  Country: US (occurrence: US)
  Receive Date: 20180916
  Receipt Date: 20180916
  Transmission Date: 20181010
  Serious: No
  Sender: FDA-Public Use
  Company Number: US-009507513-1809USA005517

PATIENT
  Age: 34 Year
  Sex: Female

DRUGS (3)
  1. GANIRELIX ACETATE INJECTION [Suspect]
     Active Substance: GANIRELIX ACETATE
     Dosage: STRENGTH :250 MICROGRAM/0.5, 250 MICROGRAM, QD
     Route: 058
     Dates: start: 20180912
  2. GANIRELIX ACETATE INJECTION [Suspect]
     Active Substance: GANIRELIX ACETATE
     Indication: INFERTILITY FEMALE
     Dosage: STRENGTH :250 MICROGRAM/0.5, 250 MICROGRAM, QD
     Route: 058
     Dates: start: 20180910
  3. GANIRELIX ACETATE INJECTION [Suspect]
     Active Substance: GANIRELIX ACETATE
     Dosage: STRENGTH :250 MICROGRAM/0.5, 250 MICROGRAM, QD
     Route: 058
     Dates: start: 20180911

REACTIONS (2)
  - Injection site rash [Unknown]
  - Injection site erythema [Unknown]

NARRATIVE: CASE EVENT DATE: 20180910
